FAERS Safety Report 11653224 (Version 2)
Quarter: 2015Q4

REPORT INFORMATION
  Report Type: Spontaneous
  Country: US (occurrence: None)
  Receive Date: 20151022
  Receipt Date: 20151113
  Transmission Date: 20160304
  Serious: Yes (Hospitalization, Other)
  Sender: FDA-Public Use
  Company Number: ADR-2014-02123

PATIENT
  Age: 47 Year
  Sex: Female

DRUGS (2)
  1. GABLOFEN [Suspect]
     Active Substance: BACLOFEN
     Dosage: 150MCG/DAY
  2. COMPOUNDED BACLOFEN INTRATHECAL [Suspect]
     Active Substance: BACLOFEN
     Indication: MUSCLE SPASTICITY

REACTIONS (11)
  - Dysgeusia [None]
  - Multiple sclerosis relapse [None]
  - Pseudomonas test positive [None]
  - Post procedural infection [None]
  - Paraesthesia [None]
  - Pain [None]
  - Adverse drug reaction [None]
  - Medical device site abscess [None]
  - Hypertension [None]
  - Salivary hypersecretion [None]
  - Weight decreased [None]
